FAERS Safety Report 5044889-4 (Version None)
Quarter: 2006Q3

REPORT INFORMATION
  Report Type: 
  Country: None (occurrence: None)
  Receive Date: 20060705
  Receipt Date: 20060623
  Transmission Date: 20061208
  Serious: Yes (Hospitalization)
  Sender: FDA-Public Use
  Company Number: US017836

PATIENT

DRUGS (1)
  1. PROVIGIL [Suspect]
     Dosage: 50 MG BID ORAL
     Route: 048

REACTIONS (1)
  - SIMPLE PARTIAL SEIZURES [None]
